FAERS Safety Report 5493637-2 (Version None)
Quarter: 2007Q4

REPORT INFORMATION
  Report Type: 
  Country: None (occurrence: None)
  Receive Date: 20071015
  Receipt Date: 20070904
  Transmission Date: 20080405
  Serious: No
  Sender: FDA-Public Use
  Company Number: 2007SP003076

PATIENT
  Age: 41 Year
  Sex: Male
  Weight: 167.8309 kg

DRUGS (11)
  1. LUNESTA [Suspect]
     Indication: INSOMNIA
     Dosage: 3 MG; HS; ORAL, 6 MG; PRN; ORAL
     Route: 048
     Dates: start: 20070101
  2. LUNESTA [Suspect]
     Indication: INSOMNIA
     Dosage: 3 MG; HS; ORAL, 6 MG; PRN; ORAL
     Route: 048
     Dates: start: 20070101
  3. METFORMIN HCL [Concomitant]
  4. GLYBURIDE [Concomitant]
  5. HUMULIN R [Concomitant]
  6. BYETTA [Concomitant]
  7. NORCO [Concomitant]
  8. SOMA [Concomitant]
  9. MOTRIN [Concomitant]
  10. SINGULAIR [Concomitant]
  11. LISINOPRIL [Concomitant]

REACTIONS (3)
  - DRUG INEFFECTIVE [None]
  - INSOMNIA [None]
  - MIGRAINE [None]
